FAERS Safety Report 8578926 (Version 5)
Quarter: 2013Q3

REPORT INFORMATION
  Report Type: Report from Study
  Country: AR (occurrence: AR)
  Receive Date: 20120524
  Receipt Date: 20130725
  Transmission Date: 20140515
  Serious: Yes (Other)
  Sender: FDA-Public Use
  Company Number: AR-ROCHE-1071013

PATIENT
  Age: 82 Year
  Sex: Female

DRUGS (1)
  1. RANIBIZUMAB [Suspect]
     Indication: MACULOPATHY
     Route: 050
     Dates: start: 2008

REACTIONS (7)
  - Malaise [Recovering/Resolving]
  - Visual acuity reduced [Not Recovered/Not Resolved]
  - Eye discharge [Not Recovered/Not Resolved]
  - Photopsia [Unknown]
  - Visual impairment [Recovering/Resolving]
  - Vision blurred [Recovering/Resolving]
  - Cataract [Not Recovered/Not Resolved]
